FAERS Safety Report 8243362-X (Version None)
Quarter: 2012Q1

REPORT INFORMATION
  Report Type: 
  Country: None (occurrence: None)
  Receive Date: 20120329
  Receipt Date: 20120319
  Transmission Date: 20120608
  Serious: Yes (Other)
  Sender: FDA-Public Use
  Company Number: US-ELI_LILLY_AND_COMPANY-US201203006242

PATIENT
  Sex: Female

DRUGS (3)
  1. HUMALOG MIX 75/25 [Suspect]
     Indication: TYPE 2 DIABETES MELLITUS
     Dosage: 70 U, BID
  2. HUMULIN 70/30 [Suspect]
     Indication: TYPE 2 DIABETES MELLITUS
     Dosage: 70 U, BID
     Dates: start: 20120319
  3. HUMALOG MIX 75/25 [Suspect]
     Dosage: 70 U, BID

REACTIONS (5)
  - DEAFNESS UNILATERAL [None]
  - CATARACT [None]
  - PRODUCT TAMPERING [None]
  - BLINDNESS UNILATERAL [None]
  - DIABETES MELLITUS INADEQUATE CONTROL [None]
